FAERS Safety Report 8836258 (Version 2)
Quarter: 2015Q2

REPORT INFORMATION
  Report Type: Report from Study
  Country: US (occurrence: US)
  Receive Date: 20121011
  Receipt Date: 20150625
  Transmission Date: 20150821
  Serious: Yes (Hospitalization)
  Sender: FDA-Public Use
  Company Number: US-ROCHE-1113557

PATIENT
  Sex: Female

DRUGS (12)
  1. HEPARIN [Concomitant]
     Active Substance: HEPARIN SODIUM
  2. NUTROPIN [Suspect]
     Active Substance: SOMATROPIN
     Indication: CHRONIC KIDNEY DISEASE
     Route: 058
  3. NUTROPIN [Suspect]
     Active Substance: SOMATROPIN
     Indication: AZOTAEMIA
     Route: 058
  4. ATORVASTATIN [Concomitant]
     Active Substance: ATORVASTATIN
     Route: 065
  5. PROGRAF [Concomitant]
     Active Substance: TACROLIMUS\TACROLIMUS ANHYDROUS
     Route: 065
  6. DEXTROSE. [Concomitant]
     Active Substance: DEXTROSE
     Route: 065
  7. OMNICEF (UNITED STATES) [Concomitant]
     Indication: URINARY TRACT INFECTION
  8. PREVACID [Concomitant]
     Active Substance: LANSOPRAZOLE
     Route: 065
  9. CALCIJEX [Concomitant]
     Active Substance: CALCITRIOL
     Dosage: MONDAY,WEDNESDAY,FRIDAY
     Route: 042
  10. CELLCEPT [Concomitant]
     Active Substance: MYCOPHENOLATE MOFETIL\MYCOPHENOLATE MOFETIL HYDROCHLORIDE
     Route: 065
  11. BICARBONATE [Concomitant]
     Active Substance: BICARBONATE ION
     Route: 065
  12. FERRLECIT (UNITED STATES) [Concomitant]
     Route: 042

REACTIONS (8)
  - Scoliosis [Unknown]
  - Malaise [Unknown]
  - Hyperphosphataemia [Unknown]
  - Hyperlipidaemia [Unknown]
  - Epstein-Barr virus infection [Unknown]
  - Hypercholesterolaemia [Unknown]
  - Metabolic acidosis [Unknown]
  - Rhinorrhoea [Unknown]
